FAERS Safety Report 6282144-5 (Version None)
Quarter: 2009Q3

REPORT INFORMATION
  Report Type: 
  Country: None (occurrence: None)
  Receive Date: 20090724
  Receipt Date: 20090714
  Transmission Date: 20100115
  Serious: Yes (Hospitalization)
  Sender: FDA-Public Use
  Company Number: JP-PFIZER INC-2009232020

PATIENT
  Age: 68 Year

DRUGS (11)
  1. VORICONAZOLE [Suspect]
     Indication: ASPERGILLOSIS
     Dosage: 300 MG, 2X/DAY
     Route: 048
     Dates: start: 20070921, end: 20070921
  2. VORICONAZOLE [Suspect]
     Dosage: 200 MG, 2X/DAY
     Route: 048
     Dates: start: 20070922, end: 20071201
  3. LASIX [Suspect]
     Dosage: UNK
     Route: 048
     Dates: start: 20070925, end: 20071130
  4. OXYCONTIN [Suspect]
     Dosage: UNK
     Route: 048
     Dates: end: 20071130
  5. PARIET [Suspect]
     Dosage: UNK
     Route: 048
     Dates: end: 20071130
  6. LENDORMIN [Suspect]
     Dosage: UNK
     Route: 048
     Dates: end: 20071130
  7. BAKTAR [Suspect]
     Dosage: UNK
     Route: 048
     Dates: end: 20071130
  8. DECADRON [Concomitant]
     Dosage: UNK
     Route: 048
     Dates: start: 20071016
  9. RED BLOOD CELLS [Concomitant]
     Dosage: UNK
     Route: 042
  10. PLATELETS, HUMAN BLOOD [Concomitant]
     Dosage: UNK
     Route: 042
  11. PLASMA [Concomitant]
     Dosage: UNK
     Route: 042

REACTIONS (1)
  - HEPATIC ENCEPHALOPATHY [None]
